FAERS Safety Report 12816948 (Version 1)
Quarter: 2016Q4

REPORT INFORMATION
  Report Type: Spontaneous
  Country: US (occurrence: US)
  Receive Date: 20161005
  Receipt Date: 20161005
  Transmission Date: 20170207
  Serious: Yes (Hospitalization)
  Sender: FDA-Public Use
  Company Number: None

PATIENT
  Age: 51 Year
  Sex: Male
  Weight: 85.5 kg

DRUGS (2)
  1. ACETAMIN ER [Concomitant]
  2. LEVOFLOXACIN ZYGENERICS [Suspect]
     Active Substance: LEVOFLOXACIN
     Indication: PNEUMONIA
     Dosage: ?          QUANTITY:1 TABLET(S);?
     Route: 048
     Dates: start: 20140118, end: 20140123

REACTIONS (4)
  - Muscle disorder [None]
  - Nightmare [None]
  - Tendon disorder [None]
  - Nervous system disorder [None]

NARRATIVE: CASE EVENT DATE: 20140123
